FAERS Safety Report 23946730 (Version 1)
Quarter: 2024Q2

REPORT INFORMATION
  Report Type: Spontaneous
  Country: US (occurrence: US)
  Receive Date: 20240606
  Receipt Date: 20240606
  Transmission Date: 20240716
  Serious: No
  Sender: FDA-Public Use
  Company Number: US-BAYER-2024A081129

PATIENT
  Age: 64 Year
  Sex: Female

DRUGS (1)
  1. ANGELIQ [Suspect]
     Active Substance: DROSPIRENONE\ESTRADIOL
     Indication: Menopausal symptoms
     Dosage: UNK
     Route: 048
     Dates: start: 2019

REACTIONS (4)
  - Drug ineffective [None]
  - Hot flush [None]
  - Heart rate increased [None]
  - Middle insomnia [None]
